FAERS Safety Report 11425952 (Version 1)
Quarter: 2015Q3

REPORT INFORMATION
  Report Type: Spontaneous
  Country: US (occurrence: US)
  Receive Date: 20150821
  Receipt Date: 20150821
  Transmission Date: 20151125
  Serious: No
  Sender: FDA-Public Use
  Company Number: US-ELI_LILLY_AND_COMPANY-US201012005602

PATIENT
  Age: 73 Year
  Sex: Female

DRUGS (5)
  1. OMEGA 3 [Concomitant]
     Active Substance: OMEGA-3 FATTY ACIDS
  2. HUMULIN R [Suspect]
     Active Substance: INSULIN HUMAN
  3. VITAMIN B12 [Concomitant]
     Active Substance: CYANOCOBALAMIN
  4. WATER PILLS [Concomitant]
     Active Substance: UNSPECIFIED INGREDIENT
  5. LANTUS [Concomitant]
     Active Substance: INSULIN GLARGINE

REACTIONS (3)
  - Depressed mood [Unknown]
  - Blood glucose increased [Unknown]
  - Malaise [Unknown]
